FAERS Safety Report 7865968-X (Version None)
Quarter: 2011Q4

REPORT INFORMATION
  Report Type: 
  Country: None (occurrence: None)
  Receive Date: 20111028
  Receipt Date: 20110330
  Transmission Date: 20120403
  Serious: No
  Sender: FDA-Public Use
  Company Number: US-GLAXOSMITHKLINE-A0920703A

PATIENT
  Age: 75 Year
  Sex: Female

DRUGS (12)
  1. CALCIUM CARBONATE [Concomitant]
  2. LOVAZA [Concomitant]
  3. LEVOTHYROXINE SODIUM [Concomitant]
  4. MULTI-VITAMIN [Concomitant]
  5. EVISTA [Concomitant]
  6. FUROSEMIDE [Concomitant]
  7. LISINOPRIL [Concomitant]
  8. GLUCOSAMINE [Concomitant]
  9. VITAMIN D [Concomitant]
  10. BIOTIN [Concomitant]
  11. ADVAIR DISKUS 100/50 [Suspect]
     Indication: PRODUCT USED FOR UNKNOWN INDICATION
     Dosage: 1PUFF TWICE PER DAY
     Route: 055
     Dates: start: 20110301
  12. SPIRIVA [Concomitant]

REACTIONS (3)
  - NASAL DRYNESS [None]
  - SWOLLEN TONGUE [None]
  - GLOSSODYNIA [None]
